FAERS Safety Report 10207069 (Version 1)
Quarter: 2014Q2

REPORT INFORMATION
  Report Type: Spontaneous
  Country: US (occurrence: US)
  Receive Date: 20140530
  Receipt Date: 20140530
  Transmission Date: 20141212
  Serious: Yes (Other)
  Sender: FDA-Public Use
  Company Number: US-ELI_LILLY_AND_COMPANY-US201405006259

PATIENT
  Sex: Female

DRUGS (3)
  1. HUMALOG LISPRO [Suspect]
     Indication: TYPE 2 DIABETES MELLITUS
     Dosage: UNK, QID
     Route: 065
     Dates: start: 2004
  2. HUMALOG LISPRO [Suspect]
     Indication: TYPE 2 DIABETES MELLITUS
     Dosage: UNK, QID
     Route: 065
  3. LEVEMIR [Concomitant]
     Dosage: UNK, BID

REACTIONS (4)
  - Blindness unilateral [Unknown]
  - Aneurysm [Unknown]
  - Blood glucose increased [Unknown]
  - Underdose [Unknown]
